FAERS Safety Report 7783619-X (Version None)
Quarter: 2011Q3

REPORT INFORMATION
  Report Type: 
  Country: None (occurrence: None)
  Receive Date: 20110928
  Receipt Date: 20110117
  Transmission Date: 20111222
  Serious: No
  Sender: FDA-Public Use
  Company Number: US-MYLANLABS-2011S1001292

PATIENT
  Age: 71 Year
  Sex: Female
  Weight: 116.58 kg

DRUGS (2)
  1. NITRGLYCERIN TRANSDERMAL SYSTEM [Suspect]
     Indication: CHEST PAIN
     Dosage: 12HRS ON, 12HRS OFF
     Route: 062
     Dates: start: 20100601
  2. GLIPIZIDE [Concomitant]
     Indication: DIABETES MELLITUS
     Route: 048
     Dates: start: 20070101

REACTIONS (4)
  - APPLICATION SITE BLEEDING [None]
  - APPLICATION SITE PRURITUS [None]
  - APPLICATION SITE PAIN [None]
  - APPLICATION SITE ERYTHEMA [None]
